FAERS Safety Report 8196510-4 (Version None)
Quarter: 2012Q1

REPORT INFORMATION
  Report Type: 
  Country: None (occurrence: None)
  Receive Date: 20120309
  Receipt Date: 20120306
  Transmission Date: 20120608
  Serious: Yes (Hospitalization, Other)
  Sender: FDA-Public Use
  Company Number: US-BAYER-2011-122353

PATIENT
  Age: 79 Year
  Sex: Male
  Weight: 81.633 kg

DRUGS (15)
  1. NEXAVAR [Suspect]
     Indication: RENAL CANCER
     Dosage: 200 MG, BID
     Route: 048
     Dates: start: 20111214, end: 20111230
  2. ZOLPIDEM [Concomitant]
     Dosage: 10 MG, UNK
  3. LEVOTHYROXINE SODIUM [Concomitant]
     Dosage: 0.5 TABLET EVERY OTHER DAY AND ONE TABLET ON ALTERNATE DAYS
  4. NEXIUM [Concomitant]
     Dosage: 40 MG, QD
  5. LIPITOR [Concomitant]
     Dosage: 10 MG, QD
  6. HYDROCHLOROTHIAZIDE [Concomitant]
     Indication: OEDEMA
     Dosage: 12.5 MG, 1 PER DAY IF NEEDED
  7. ASPIRIN [Concomitant]
     Dosage: 81 MG, QD
  8. METOPROLOL SUCCINATE [Concomitant]
     Dosage: 25 MG, QD
  9. EPOGEN [Concomitant]
     Dosage: 20000 U, PRN
     Route: 048
  10. DOXYCYCLINE HYCLATE [DOXYCYCLINE HYCLATE] [Concomitant]
     Indication: ROSACEA
     Dosage: 50 MG, QD
  11. WARFARIN SODIUM [Concomitant]
     Indication: ATRIAL FIBRILLATION
     Dosage: 2.5 MG, QD
  12. NEXAVAR [Suspect]
     Dosage: 200 MG, QD
     Route: 048
     Dates: start: 20120113
  13. NEXAVAR [Suspect]
     Dosage: 200 MG, BID
     Route: 048
     Dates: start: 20120101, end: 20120202
  14. RENA-VITE [Concomitant]
     Dosage: UNK UNK, QD
  15. ACYCLOVIR [Concomitant]
     Indication: ORAL HERPES
     Dosage: 200 MG, 5 PER DAY WHEN NECASSARY

REACTIONS (11)
  - CONFUSIONAL STATE [None]
  - ERYTHEMA [None]
  - MUSCULOSKELETAL PAIN [None]
  - PRURITUS [None]
  - BLOOD PRESSURE INCREASED [None]
  - ARTHRALGIA [None]
  - HEADACHE [None]
  - POLLAKIURIA [None]
  - PAIN [None]
  - DYSPEPSIA [None]
  - AMNESIA [None]
